FAERS Safety Report 18401661 (Version 1)
Quarter: 2020Q4

REPORT INFORMATION
  Report Type: Spontaneous
  Country: FR (occurrence: FR)
  Receive Date: 20201019
  Receipt Date: 20201019
  Transmission Date: 20210114
  Serious: Yes (Other)
  Sender: FDA-Public Use
  Company Number: FR-AMGEN-NLDSP2020157431

PATIENT
  Age: 71 Year
  Sex: Female

DRUGS (1)
  1. OTEZLA [Suspect]
     Active Substance: APREMILAST
     Indication: PSORIASIS
     Dosage: 10 MILLIGRAM
     Route: 065
     Dates: start: 20200926, end: 202010

REACTIONS (15)
  - Rash pruritic [Unknown]
  - Diarrhoea [Not Recovered/Not Resolved]
  - Swollen tongue [Unknown]
  - Chills [Unknown]
  - Illness [Unknown]
  - Erythema [Unknown]
  - Nausea [Not Recovered/Not Resolved]
  - Speech disorder [Unknown]
  - Abdominal pain upper [Unknown]
  - Pruritus [Unknown]
  - Headache [Recovered/Resolved]
  - Vomiting [Not Recovered/Not Resolved]
  - Loss of consciousness [Unknown]
  - Fatigue [Unknown]
  - Abdominal discomfort [Not Recovered/Not Resolved]

NARRATIVE: CASE EVENT DATE: 2020
